FAERS Safety Report 8196801-7 (Version None)
Quarter: 2012Q1

REPORT INFORMATION
  Report Type: 
  Country: None (occurrence: None)
  Receive Date: 20120309
  Receipt Date: 20120305
  Transmission Date: 20120608
  Serious: Yes (Other)
  Sender: FDA-Public Use
  Company Number: US-PFIZER INC-2012016015

PATIENT
  Sex: Male
  Weight: 77.098 kg

DRUGS (6)
  1. DETROL [Suspect]
     Indication: BLADDER CANCER
     Dosage: 4 MG, 1X/DAY
     Route: 048
     Dates: start: 20070101
  2. DETROL [Suspect]
     Dosage: UNK
     Route: 048
  3. DETROL LA [Suspect]
     Indication: POLLAKIURIA
  4. LOTREL [Concomitant]
     Indication: HYPERTENSION
     Dosage: UNK
  5. ACCUPRIL [Concomitant]
     Dosage: UNK
  6. DETROL LA [Suspect]
     Indication: MICTURITION URGENCY
     Dosage: 4 MG, DAILY
     Route: 048
     Dates: start: 20030707, end: 20030801

REACTIONS (3)
  - BLADDER CANCER [None]
  - SURGERY [None]
  - CHEMOTHERAPY [None]
